FAERS Safety Report 19836177 (Version 6)
Quarter: 2024Q4

REPORT INFORMATION
  Report Type: Spontaneous
  Country: IT (occurrence: IT)
  Receive Date: 20210916
  Receipt Date: 20241206
  Transmission Date: 20250115
  Serious: Yes (Life-Threatening)
  Sender: AUROBINDO
  Company Number: IT-VIFOR (INTERNATIONAL) INC.-VIT-2021-03923

PATIENT
  Age: 15 Year
  Sex: Female
  Weight: 59 kg

DRUGS (20)
  1. AMOXICILLIN [Suspect]
     Active Substance: AMOXICILLIN
     Indication: Prophylaxis
     Dosage: UNK
     Route: 065
     Dates: start: 20210608, end: 20210615
  2. AMOXICILLIN [Suspect]
     Active Substance: AMOXICILLIN
     Indication: Antibiotic prophylaxis
  3. AMOXICILLIN [Suspect]
     Active Substance: AMOXICILLIN
     Indication: Prophylaxis
     Dosage: 250 MILLIGRAM
     Route: 065
     Dates: start: 201809
  4. AMOXICILLIN [Suspect]
     Active Substance: AMOXICILLIN
     Indication: Antibiotic prophylaxis
     Dosage: 250 MILLIGRAM
     Route: 065
     Dates: start: 20210608, end: 20210615
  5. AMOXICILLIN [Suspect]
     Active Substance: AMOXICILLIN
     Dosage: 250 MILLIGRAM
     Route: 065
  6. AVACOPAN [Suspect]
     Active Substance: AVACOPAN
     Indication: C3 glomerulopathy
     Dosage: UNK
     Route: 048
     Dates: start: 201809
  7. AVACOPAN [Suspect]
     Active Substance: AVACOPAN
     Indication: Granulomatosis with polyangiitis
     Dosage: 30 MILLIGRAM, ONCE A DAY
     Route: 048
     Dates: start: 20190405, end: 20191002
  8. AVACOPAN [Suspect]
     Active Substance: AVACOPAN
     Indication: Microscopic polyangiitis
     Dosage: 30 MILLIGRAM, ONCE A DAY
     Route: 048
     Dates: start: 20191218, end: 20210428
  9. AVACOPAN [Suspect]
     Active Substance: AVACOPAN
     Dosage: 30 MILLIGRAM, ONCE A DAY
     Route: 065
     Dates: start: 20210607, end: 20210611
  10. AVACOPAN [Suspect]
     Active Substance: AVACOPAN
     Dosage: UNK
     Route: 065
     Dates: start: 20210624, end: 2023
  11. CYCLOSPORINE [Suspect]
     Active Substance: CYCLOSPORINE
     Indication: C3 glomerulopathy
     Dosage: 50 MILLIGRAM, ONCE A DAY
     Route: 048
  12. CYCLOSPORINE [Suspect]
     Active Substance: CYCLOSPORINE
     Indication: Nephropathy
     Dosage: 50 MILLIGRAM, ONCE A DAY
     Route: 065
     Dates: start: 201806
  13. KAYEXALATE [Concomitant]
     Active Substance: SODIUM POLYSTYRENE SULFONATE
     Indication: Hyperkalaemia
     Dosage: 15 GRAM
     Route: 048
  14. RAMIPRIL [Concomitant]
     Active Substance: RAMIPRIL
     Indication: C3 glomerulopathy
     Dosage: 5 MILLIGRAM, ONCE A DAY
     Route: 048
  15. RAMIPRIL [Concomitant]
     Active Substance: RAMIPRIL
     Indication: Nephropathy
     Dosage: 5 MILLIGRAM, ONCE A DAY
     Route: 065
     Dates: start: 201609
  16. PREDNISOLONE [Concomitant]
     Active Substance: PREDNISOLONE
     Indication: C3 glomerulopathy
     Dosage: UNK
     Route: 065
     Dates: start: 201609, end: 201809
  17. MYCOPHENOLATE MOFETIL [Concomitant]
     Active Substance: MYCOPHENOLATE MOFETIL
     Indication: C3 glomerulopathy
     Dosage: UNK
     Route: 065
     Dates: start: 201609
  18. FLUTICASONE [Concomitant]
     Active Substance: FLUTICASONE
     Indication: Asthma
     Dosage: UNK
     Dates: start: 201902
  19. RAMIPRIL [Concomitant]
     Active Substance: RAMIPRIL
     Indication: C3 glomerulopathy
     Dosage: 5 MILLIGRAM, ONCE A DAY
     Route: 065
     Dates: start: 201609
  20. RAMIPRIL [Concomitant]
     Active Substance: RAMIPRIL
     Indication: Nephropathy
     Dosage: 5 MILLIGRAM, ONCE A DAY
     Route: 048

REACTIONS (6)
  - Blood creatine phosphokinase increased [Recovered/Resolved]
  - Proteinuria [Unknown]
  - Aspartate aminotransferase increased [Recovered/Resolved]
  - Blood creatine phosphokinase increased [Recovered/Resolved]
  - Toxicity to various agents [Recovered/Resolved]
  - Treatment noncompliance [Unknown]

NARRATIVE: CASE EVENT DATE: 20210428
